FAERS Safety Report 7402431-4 (Version None)
Quarter: 2011Q2

REPORT INFORMATION
  Report Type: 
  Country: None (occurrence: None)
  Receive Date: 20110408
  Receipt Date: 20110331
  Transmission Date: 20111010
  Serious: Yes (Hospitalization)
  Sender: FDA-Public Use
  Company Number: PHHY2011US23589

PATIENT
  Sex: Female
  Weight: 41 kg

DRUGS (10)
  1. AZITHROMYCIN [Concomitant]
  2. HYPERSAL [Concomitant]
  3. VITAMINS [Concomitant]
  4. PANCRELIPASE [Concomitant]
     Indication: CYSTIC FIBROSIS
     Dosage: WITH MEALS
     Route: 048
  5. PREVACID [Concomitant]
  6. PULMOZYME [Concomitant]
     Indication: CYSTIC FIBROSIS
     Dosage: 2.5 MG, QD
  7. CREON [Concomitant]
  8. TOBI [Suspect]
     Indication: CYSTIC FIBROSIS
     Dosage: 300 MG BID
     Dates: start: 20110301, end: 20110320
  9. SALINE [Concomitant]
     Indication: CYSTIC FIBROSIS
     Dosage: 7 %, QD
  10. ALBUTEROL [Concomitant]

REACTIONS (2)
  - PNEUMONIA STAPHYLOCOCCAL [None]
  - PULMONARY FUNCTION TEST DECREASED [None]
